FAERS Safety Report 4384281-9 (Version None)
Quarter: 2004Q2

REPORT INFORMATION
  Report Type: 
  Country: None (occurrence: None)
  Receive Date: 20040624
  Receipt Date: 20040525
  Transmission Date: 20050107
  Serious: Yes (Other)
  Sender: FDA-Public Use
  Company Number: AU-ROCHE-368845

PATIENT
  Age: 24 Year
  Sex: Male
  Weight: 110 kg

DRUGS (4)
  1. ROACCUTANE [Suspect]
     Route: 048
     Dates: start: 19850111, end: 19850613
  2. ROACCUTANE [Suspect]
     Dosage: DOSAGE REDUCTION.
     Route: 048
     Dates: start: 19850615
  3. ROACCUTANE [Suspect]
     Route: 048
     Dates: start: 20040129
  4. ROACCUTANE [Suspect]
     Route: 048
     Dates: end: 20040419

REACTIONS (4)
  - CHEST PAIN [None]
  - MYALGIA [None]
  - NAUSEA [None]
  - VOMITING [None]
